FAERS Safety Report 13453359 (Version 1)
Quarter: 2017Q2

REPORT INFORMATION
  Report Type: Spontaneous
  Country: US (occurrence: US)
  Receive Date: 20170418
  Receipt Date: 20170418
  Transmission Date: 20170830
  Serious: No
  Sender: FDA-Public Use
  Company Number: US-ALLERGAN-1655375US

PATIENT
  Age: 62 Year
  Sex: Female

DRUGS (3)
  1. RESTASIS [Concomitant]
     Active Substance: CYCLOSPORINE
     Indication: DRY EYE
     Dosage: 2 GTT, BID
  2. RETINOL [Concomitant]
     Active Substance: RETINOL
     Indication: PRODUCT USED FOR UNKNOWN INDICATION
  3. LATISSE [Suspect]
     Active Substance: BIMATOPROST
     Indication: GROWTH OF EYELASHES
     Dosage: 2 GTT, QHS
     Route: 061
     Dates: start: 20160224

REACTIONS (4)
  - Eyelash thickening [Recovering/Resolving]
  - Trichorrhexis [Not Recovered/Not Resolved]
  - Trichiasis [Not Recovered/Not Resolved]
  - Madarosis [Recovering/Resolving]

NARRATIVE: CASE EVENT DATE: 201602
